FAERS Safety Report 14929956 (Version 6)
Quarter: 2018Q4

REPORT INFORMATION
  Report Type: Spontaneous
  Country: US (occurrence: US)
  Receive Date: 20180523
  Receipt Date: 20181010
  Transmission Date: 20190204
  Serious: Yes (Hospitalization)
  Sender: FDA-Public Use
  Company Number: US-ACTELION-A-NJ2018-172526

PATIENT
  Age: 61 Year
  Sex: Female
  Weight: 59.86 kg

DRUGS (1)
  1. VELETRI [Suspect]
     Active Substance: EPOPROSTENOL
     Indication: PULMONARY ARTERIAL HYPERTENSION
     Dosage: 18 NG/KG, PER MIN
     Route: 042

REACTIONS (8)
  - Anaemia [Unknown]
  - Ulcer [Unknown]
  - Gastrointestinal haemorrhage [Unknown]
  - Gastric haemorrhage [Unknown]
  - Red blood cell count decreased [Unknown]
  - Haemoglobin decreased [Unknown]
  - Transfusion [Unknown]
  - Internal haemorrhage [Unknown]
